FAERS Safety Report 11482898 (Version 1)
Quarter: 2015Q3

REPORT INFORMATION
  Report Type: Spontaneous
  Country: US (occurrence: None)
  Receive Date: 20150908
  Receipt Date: 20150908
  Transmission Date: 20151125
  Serious: No
  Sender: FDA-Public Use
  Company Number: None

PATIENT
  Age: 51 Year
  Sex: Female
  Weight: 77.11 kg

DRUGS (3)
  1. ANTI DEPRESSANT [Concomitant]
     Active Substance: UNSPECIFIED INGREDIENT
  2. MONISTAT 1 COMBINATION PACK [Suspect]
     Active Substance: MICONAZOLE NITRATE
     Indication: FUNGAL INFECTION
     Route: 067
     Dates: start: 20150825
  3. LINZESS [Concomitant]
     Active Substance: LINACLOTIDE

REACTIONS (7)
  - Vulvovaginal swelling [None]
  - Insomnia [None]
  - Vulvovaginal pain [None]
  - Rash [None]
  - Vulvovaginal burning sensation [None]
  - Vulvovaginal pruritus [None]
  - Stress [None]

NARRATIVE: CASE EVENT DATE: 20150824
